FAERS Safety Report 6113079-6 (Version None)
Quarter: 2009Q1

REPORT INFORMATION
  Report Type: 
  Country: None (occurrence: None)
  Receive Date: 20090312
  Receipt Date: 20090305
  Transmission Date: 20090719
  Serious: Yes (Hospitalization)
  Sender: FDA-Public Use
  Company Number: FR-ABBOTT-09P-056-0560801-00

PATIENT
  Age: 31 Year
  Sex: Male

DRUGS (2)
  1. ZECLAR [Suspect]
     Indication: TONSILLITIS
     Route: 048
     Dates: start: 20030101, end: 20030101
  2. ERYTHROMYCIN BASE [Suspect]

REACTIONS (3)
  - DRUG HYPERSENSITIVITY [None]
  - PALATAL OEDEMA [None]
  - URTICARIA [None]
